FAERS Safety Report 5948091-0 (Version None)
Quarter: 2008Q4

REPORT INFORMATION
  Report Type: 
  Country: None (occurrence: None)
  Receive Date: 20081111
  Receipt Date: 20081031
  Transmission Date: 20090506
  Serious: Yes (Hospitalization)
  Sender: FDA-Public Use
  Company Number: US-NOVOPROD-280955

PATIENT
  Sex: Female
  Weight: 62.585 kg

DRUGS (9)
  1. VAGIFEM [Suspect]
     Indication: VULVOVAGINAL DRYNESS
     Route: 067
     Dates: start: 20010801, end: 20070701
  2. PREMPRO [Suspect]
     Indication: MENOPAUSE
     Dosage: 0.625/2.5 MG, UNK
     Dates: start: 19981101, end: 19991201
  3. PREMPRO [Suspect]
     Dosage: 0.625/5 MG, UNK
     Route: 048
     Dates: start: 19991201, end: 20041201
  4. ORTHO TRI-CYCLEN [Suspect]
     Indication: MENSTRUATION IRREGULAR
     Dates: start: 19720101, end: 19980101
  5. PREMARIN [Suspect]
     Indication: VULVOVAGINAL DRYNESS
     Dosage: 42.5 MG, CREAM
     Route: 067
     Dates: start: 19981101, end: 19990101
  6. ESTRING [Suspect]
     Indication: VULVOVAGINAL DRYNESS
     Dosage: 2 MG
     Route: 067
     Dates: start: 20021201, end: 20030901
  7. PAROXETINE HCL [Concomitant]
     Indication: DEPRESSION
     Dates: start: 20060701
  8. TAMOXIFEN [Concomitant]
     Indication: BREAST CANCER STAGE II
  9. TRAZODONE HCL [Concomitant]
     Indication: DEPRESSION
     Route: 048
     Dates: start: 19981101

REACTIONS (1)
  - BREAST CANCER STAGE II [None]
